FAERS Safety Report 16382988 (Version 1)
Quarter: 2019Q2

REPORT INFORMATION
  Report Type: Spontaneous
  Country: US (occurrence: US)
  Receive Date: 20190507
  Receipt Date: 20190507
  Transmission Date: 20190711
  Serious: Yes (Other)
  Sender: FDA-Public Use
  Company Number: None

PATIENT
  Age: 80 Year
  Sex: Male
  Weight: 87.3 kg

DRUGS (14)
  1. TAMSULOSIN [Concomitant]
     Active Substance: TAMSULOSIN
  2. LISINOPRO [Concomitant]
  3. ACETAMINOPHEN. [Concomitant]
     Active Substance: ACETAMINOPHEN
  4. AMLODIPINE [Concomitant]
     Active Substance: AMLODIPINE BESYLATE
  5. ASCORBIC ACID. [Concomitant]
     Active Substance: ASCORBIC ACID
  6. WARFRIN [Concomitant]
  7. METOPROLO [Concomitant]
     Active Substance: METOPROLOL
  8. ATORVASTIN [Concomitant]
     Active Substance: ATORVASTATIN
  9. CYANOCOBALAMIN. [Concomitant]
     Active Substance: CYANOCOBALAMIN
  10. KEYTRUDA [Suspect]
     Active Substance: PEMBROLIZUMAB
     Indication: MESOTHELIOMA
     Dosage: ?          OTHER STRENGTH:KNOWN BY DOCTOR;QUANTITY:2 INJECTION(S);OTHER FREQUENCY:EVERY 3 WEEKS;?
     Route: 042
     Dates: start: 20190228, end: 20190428
  11. TEMAZEPAM. [Concomitant]
     Active Substance: TEMAZEPAM
  12. SUCRALFATE. [Concomitant]
     Active Substance: SUCRALFATE
  13. OMEPRAZOLE. [Concomitant]
     Active Substance: OMEPRAZOLE
  14. GLIMEPIRIDE. [Concomitant]
     Active Substance: GLIMEPIRIDE

REACTIONS (4)
  - Pain in extremity [None]
  - Movement disorder [None]
  - Bone pain [None]
  - Joint swelling [None]

NARRATIVE: CASE EVENT DATE: 20190328
